FAERS Safety Report 4356718-2 (Version None)
Quarter: 2004Q2

REPORT INFORMATION
  Report Type: 
  Country: None (occurrence: None)
  Receive Date: 20040507
  Receipt Date: 20040428
  Transmission Date: 20050107
  Serious: Yes (Hospitalization)
  Sender: FDA-Public Use
  Company Number: STA-AE-04-MTX-176

PATIENT
  Age: 60 Year
  Sex: Male

DRUGS (9)
  1. METHOTREXATE [Suspect]
     Indication: RHEUMATOID ARTHRITIS
     Dosage: 25 MG 1X PER 1 WK, ORAL
     Route: 048
     Dates: start: 19980514
  2. REMICADE [Concomitant]
  3. ACETYLSALICYLIC ACID SRT [Concomitant]
  4. PREVACID [Concomitant]
  5. FOLIC ACID [Concomitant]
  6. PRAVACHOL [Concomitant]
  7. TOPROL-XL [Concomitant]
  8. ISMO-SLOW RELEASE (ISOSORBIDE MONONITRATE) [Concomitant]
  9. PREDNISONE [Concomitant]

REACTIONS (3)
  - CHEST PAIN [None]
  - DYSPNOEA [None]
  - HYPERHIDROSIS [None]
